FAERS Safety Report 24254996 (Version 4)
Quarter: 2025Q1

REPORT INFORMATION
  Report Type: Spontaneous
  Country: US (occurrence: US)
  Receive Date: 20240827
  Receipt Date: 20250224
  Transmission Date: 20250408
  Serious: Yes (Other)
  Sender: PFIZER
  Company Number: US-PFIZER INC-PV202400110283

PATIENT
  Age: 75 Year
  Sex: Female
  Weight: 66.7 kg

DRUGS (7)
  1. IBRANCE [Suspect]
     Active Substance: PALBOCICLIB
     Indication: Breast cancer metastatic
     Dates: start: 202308
  2. IBRANCE [Suspect]
     Active Substance: PALBOCICLIB
     Route: 048
  3. FASLODEX [Concomitant]
     Active Substance: FULVESTRANT
     Dates: start: 202308
  4. ZOMETA [Concomitant]
     Active Substance: ZOLEDRONIC ACID
     Dates: start: 202308
  5. FULVESTRANT [Concomitant]
     Active Substance: FULVESTRANT
     Dates: start: 202308
  6. FULVESTRANT [Concomitant]
     Active Substance: FULVESTRANT
     Dates: start: 202310
  7. ZOLEDRONIC ACID [Concomitant]
     Active Substance: ZOLEDRONIC ACID
     Dates: start: 202308

REACTIONS (1)
  - Neutropenia [Not Recovered/Not Resolved]
